FAERS Safety Report 21851824 (Version 2)
Quarter: 2023Q1

REPORT INFORMATION
  Report Type: Spontaneous
  Country: JP (occurrence: JP)
  Receive Date: 20230112
  Receipt Date: 20230206
  Transmission Date: 20230418
  Serious: Yes (Other)
  Sender: FDA-Public Use
  Company Number: JP-BAYER-2023P000897

PATIENT
  Age: 58 Year
  Sex: Male

DRUGS (4)
  1. EYLEA [Suspect]
     Active Substance: AFLIBERCEPT
     Indication: Age-related macular degeneration
     Dosage: RIGHT EYE, ONCE, SOLUTION FOR INJECTION IN PRE-FILLED SYRINGE, 40MG/ML
     Route: 031
     Dates: start: 20200531, end: 20200531
  2. EYLEA [Suspect]
     Active Substance: AFLIBERCEPT
     Indication: Macular oedema
  3. NIVOLUMAB [Suspect]
     Active Substance: NIVOLUMAB
     Indication: Nasal sinus cancer
     Dosage: UNK
     Dates: start: 201908, end: 202003
  4. UNSPECIFIED INGREDIENT [Concomitant]
     Active Substance: UNSPECIFIED INGREDIENT
     Indication: Product used for unknown indication
     Route: 048

REACTIONS (4)
  - Choroidal detachment [Recovered/Resolved]
  - Macular oedema [Recovered/Resolved]
  - Anterior chamber inflammation [Recovered/Resolved]
  - Visual acuity reduced [Not Recovered/Not Resolved]

NARRATIVE: CASE EVENT DATE: 20200501
